FAERS Safety Report 15953950 (Version 2)
Quarter: 2021Q3

REPORT INFORMATION
  Report Type: Spontaneous
  Country: FR (occurrence: FR)
  Receive Date: 20190212
  Receipt Date: 20210921
  Transmission Date: 20211014
  Serious: Yes (Hospitalization, Other)
  Sender: FDA-Public Use
  Company Number: FR-MYLANLABS-2019M1012099

PATIENT
  Age: 73 Year
  Sex: Male

DRUGS (5)
  1. TAZOBACTAM [Interacting]
     Active Substance: TAZOBACTAM
     Indication: LUNG OPACITY
     Dosage: 500 MILLIGRAM, QD
     Route: 042
     Dates: start: 20171229
  2. CIPROFLOXACIN. [Suspect]
     Active Substance: CIPROFLOXACIN
     Indication: LUNG OPACITY
     Dosage: 200 MG QD IV NOS
     Route: 042
     Dates: start: 20171229
  3. PIPERACILLINE                      /00502401/ [Interacting]
     Active Substance: PIPERACILLIN
     Indication: LUNG OPACITY
     Dosage: 4 GRAM, QD
     Route: 042
     Dates: start: 20171229
  4. PREVISCAN                          /00261401/ [Suspect]
     Active Substance: PENTOXIFYLLINE
     Indication: PULMONARY EMBOLISM
     Dosage: 10 MG IN THE EVENING
     Route: 048
     Dates: start: 2011
  5. CALCIPARINE [Suspect]
     Active Substance: HEPARIN CALCIUM
     Indication: PULMONARY EMBOLISM
     Dosage: 5000 INTERNATIONAL UNIT, QD (CF COMMENTAIRE)
     Route: 058
     Dates: start: 20180103

REACTIONS (5)
  - Blood loss anaemia [Recovered/Resolved]
  - International normalised ratio increased [Recovered/Resolved]
  - Melaena [Recovered/Resolved]
  - Accidental overdose [Recovered/Resolved]
  - Drug interaction [Unknown]

NARRATIVE: CASE EVENT DATE: 20180103
